FAERS Safety Report 9008920 (Version 1)
Quarter: 2013Q1

REPORT INFORMATION
  Report Type: Spontaneous
  Country: US (occurrence: US)
  Receive Date: 20130111
  Receipt Date: 20130111
  Transmission Date: 20140127
  Serious: Yes (Death)
  Sender: FDA-Public Use
  Company Number: US-PFIZER INC-2013005875

PATIENT
  Age: 22 Year
  Sex: Male

DRUGS (4)
  1. VERAPAMIL HCL [Suspect]
     Route: 048
  2. ATENOLOL [Suspect]
     Route: 048
  3. AMLODIPINE BESILATE [Suspect]
     Route: 048
  4. METOPROLOL [Suspect]
     Dosage: UNK
     Route: 048

REACTIONS (1)
  - Death [Fatal]
